FAERS Safety Report 7956019-7 (Version None)
Quarter: 2011Q4

REPORT INFORMATION
  Report Type: 
  Country: None (occurrence: None)
  Receive Date: 20111205
  Receipt Date: 20111129
  Transmission Date: 20120403
  Serious: No
  Sender: FDA-Public Use
  Company Number: US-PFIZER INC-2011060451

PATIENT
  Sex: Female
  Weight: 64.399 kg

DRUGS (9)
  1. AVAPRO [Concomitant]
     Dosage: UNK
  2. MOTRIN [Concomitant]
     Dosage: UNK
  3. VITAMIN D [Concomitant]
     Dosage: UNK
  4. TOVIAZ [Suspect]
     Indication: INCONTINENCE
  5. TOVIAZ [Suspect]
     Indication: HYPERTONIC BLADDER
     Dosage: 4 MG, DAILY
     Route: 048
     Dates: start: 20110316
  6. TOVIAZ [Suspect]
     Indication: BLADDER IRRITATION
     Dosage: 4 MG, 1X/DAY
     Route: 048
     Dates: start: 20110401
  7. PROTONIX [Concomitant]
     Dosage: UNK
  8. METHOTREXATE [Concomitant]
     Dosage: UNK
  9. PLAQUENIL [Concomitant]
     Dosage: UNK

REACTIONS (4)
  - DYSGEUSIA [None]
  - CHOKING SENSATION [None]
  - DRY MOUTH [None]
  - DRY THROAT [None]
